FAERS Safety Report 9457853 (Version 1)
Quarter: 2013Q3

REPORT INFORMATION
  Report Type: Spontaneous
  Country: US (occurrence: None)
  Receive Date: 20130809
  Receipt Date: 20130809
  Transmission Date: 20140515
  Serious: Yes (Hospitalization)
  Sender: FDA-Public Use
  Company Number: JPI-P-034049

PATIENT
  Age: 51 Year
  Sex: Female
  Weight: 115.67 kg

DRUGS (5)
  1. XYREM (500 MILLIGRAM/MILLILITERS, SOLUTION) (SODIUM OXYBATE) [Suspect]
     Indication: CATAPLEXY
     Dosage: (2.25 GM, 2 IN 1 D)
     Route: 048
     Dates: start: 20091130
  2. INSULIN GLARGINE [Concomitant]
  3. ALPRAZOLAM [Concomitant]
  4. CITALOPRAM [Concomitant]
  5. MODAFINIL [Concomitant]

REACTIONS (8)
  - Transient ischaemic attack [None]
  - Convulsion [None]
  - Depression [None]
  - Vitamin B12 decreased [None]
  - Stress [None]
  - Hallucination, auditory [None]
  - Somatisation disorder [None]
  - Confusional state [None]
